FAERS Safety Report 4277122-1 (Version None)
Quarter: 2004Q1

REPORT INFORMATION
  Report Type: 
  Country: None (occurrence: None)
  Receive Date: 20040120
  Receipt Date: 20040106
  Transmission Date: 20041129
  Serious: Yes (Other)
  Sender: FDA-Public Use
  Company Number: HQWYE150307JAN04

PATIENT
  Age: 24 Year
  Sex: Female

DRUGS (2)
  1. ALESSE-28 (LEVONORGESTREL/ETHINYL ETRADIOL/INERT, TABLET) [Suspect]
     Indication: CONTRACEPTION
     Dosage: 1 TABLET DAILY ORAL
     Route: 048
     Dates: start: 20010101
  2. EFFEXOR XR [Suspect]
     Dates: start: 20030601

REACTIONS (5)
  - ABORTION INDUCED [None]
  - DRUG EXPOSURE DURING PREGNANCY [None]
  - DRUG INEFFECTIVE [None]
  - DRUG INTERACTION [None]
  - PREGNANCY ON ORAL CONTRACEPTIVE [None]
